FAERS Safety Report 6293383-1 (Version None)
Quarter: 2009Q3

REPORT INFORMATION
  Report Type: 
  Country: None (occurrence: None)
  Receive Date: 20090731
  Receipt Date: 20090722
  Transmission Date: 20100115
  Serious: Yes (Life-Threatening, Hospitalization, Disabling)
  Sender: FDA-Public Use
  Company Number: CA-MERCK-0907CAN00128

PATIENT
  Age: 14 Year
  Sex: Female
  Weight: 58 kg

DRUGS (4)
  1. SINGULAIR [Suspect]
     Route: 048
  2. ALBUTEROL SULFATE [Concomitant]
     Route: 065
  3. MIRTAZAPINE [Concomitant]
     Route: 065
  4. BUDESONIDE AND FORMOTEROL FUMARATE [Concomitant]
     Route: 065

REACTIONS (7)
  - ABDOMINAL SYMPTOM [None]
  - DEPRESSION [None]
  - GASTROINTESTINAL DISORDER [None]
  - HEADACHE [None]
  - INTENTIONAL SELF-INJURY [None]
  - NEUROPATHY PERIPHERAL [None]
  - SUICIDAL IDEATION [None]
